FAERS Safety Report 11864542 (Version 1)
Quarter: 2015Q4

REPORT INFORMATION
  Report Type: Report from Study
  Country: US (occurrence: US)
  Receive Date: 20151223
  Receipt Date: 20151223
  Transmission Date: 20160305
  Serious: Yes (Other)
  Sender: FDA-Public Use
  Company Number: PHEH2015US026069

PATIENT
  Age: 69 Year
  Sex: Female

DRUGS (3)
  1. CAYSTON [Suspect]
     Active Substance: AZTREONAM
     Indication: INFECTIVE EXACERBATION OF BRONCHIECTASIS
     Dosage: 75 OT, UNK
     Route: 055
     Dates: start: 20151203
  2. TOBI [Suspect]
     Active Substance: TOBRAMYCIN
     Indication: PRODUCT USED FOR UNKNOWN INDICATION
     Route: 065
  3. CAYSTON [Suspect]
     Active Substance: AZTREONAM
     Indication: PSEUDOMONAS INFECTION
     Dosage: 75 MG, UNK
     Route: 055
     Dates: start: 20110207

REACTIONS (5)
  - Bronchiectasis [Unknown]
  - Off label use [Unknown]
  - Pathogen resistance [Unknown]
  - Pharyngeal disorder [Unknown]
  - Malaise [Unknown]
